FAERS Safety Report 10737527 (Version 2)
Quarter: 2015Q2

REPORT INFORMATION
  Report Type: Spontaneous
  Country: US (occurrence: None)
  Receive Date: 20150122
  Receipt Date: 20150506
  Transmission Date: 20150821
  Serious: Yes (Other)
  Sender: FDA-Public Use
  Company Number: ADR-2015-00109

PATIENT
  Age: 33 Year
  Sex: Female

DRUGS (1)
  1. BACLOFEN INTRATHECAL2000 OR 2500 MG/ML [Suspect]
     Active Substance: BACLOFEN
     Indication: MUSCLE SPASTICITY
     Dosage: 800 SOMETHING

REACTIONS (3)
  - Patient-device incompatibility [None]
  - Vomiting [None]
  - Muscle spasticity [None]

NARRATIVE: CASE EVENT DATE: 20140702
